FAERS Safety Report 9143097 (Version 1)
Quarter: 2013Q1

REPORT INFORMATION
  Report Type: Spontaneous
  Country: US (occurrence: US)
  Receive Date: 20130306
  Receipt Date: 20130306
  Transmission Date: 20140127
  Serious: No
  Sender: FDA-Public Use
  Company Number: US-PFIZER INC-2013075390

PATIENT
  Age: 53 Year
  Sex: Female
  Weight: 63.49 kg

DRUGS (4)
  1. CELEBREX [Suspect]
     Dosage: 200 MG, UNK
  2. CELEBREX [Suspect]
     Dosage: 100 MG, UNK
  3. CYMBALTA [Suspect]
     Dosage: 20 MG, UNK
     Dates: start: 20130228
  4. CYMBALTA [Suspect]
     Dosage: 120 MG, UNK

REACTIONS (6)
  - Liver function test abnormal [Unknown]
  - Renal function test abnormal [Unknown]
  - Fatigue [Unknown]
  - Feeling cold [Unknown]
  - Dizziness [Unknown]
  - Diarrhoea [Unknown]
